FAERS Safety Report 4688980-0 (Version None)
Quarter: 2005Q2

REPORT INFORMATION
  Report Type: 
  Country: None (occurrence: None)
  Receive Date: 20050613
  Receipt Date: 20050509
  Transmission Date: 20051028
  Serious: Yes (Other)
  Sender: FDA-Public Use
  Company Number: JP-MERCK-0505USA01022

PATIENT
  Age: 63 Year
  Sex: Female

DRUGS (6)
  1. PEPCID RPD [Suspect]
     Indication: ABDOMINAL SYMPTOM
     Route: 048
     Dates: start: 20050416, end: 20050422
  2. PEPCID RPD [Suspect]
     Route: 048
     Dates: start: 20050502
  3. GASMOTIN [Suspect]
     Indication: ABDOMINAL SYMPTOM
     Route: 048
     Dates: start: 20050416, end: 20050422
  4. GASMOTIN [Suspect]
     Route: 065
     Dates: start: 20050502
  5. COUGH, COLD, AND FLU THERAPIES (UNSPECIFIED) [Suspect]
     Indication: PYREXIA
     Route: 048
     Dates: start: 20050419, end: 20050419
  6. COUGH, COLD, AND FLU THERAPIES (UNSPECIFIED) [Suspect]
     Route: 048
     Dates: start: 20050421, end: 20050421

REACTIONS (2)
  - HEPATOCELLULAR DAMAGE [None]
  - PYREXIA [None]
